FAERS Safety Report 20929591 (Version 1)
Quarter: 2022Q2

REPORT INFORMATION
  Report Type: Spontaneous
  Country: US (occurrence: US)
  Receive Date: 20220608
  Receipt Date: 20220608
  Transmission Date: 20220721
  Serious: No
  Sender: FDA-Public Use
  Company Number: US-NOVARTISTESTPH-NVSC2022US130779

PATIENT
  Sex: Female

DRUGS (1)
  1. COSENTYX [Suspect]
     Active Substance: SECUKINUMAB
     Indication: Axial spondyloarthritis
     Dosage: 150 MG, QOD
     Route: 058
     Dates: start: 20220603

REACTIONS (3)
  - Injection site bruising [Recovered/Resolved]
  - Anaemia [Recovered/Resolved]
  - Device difficult to use [Recovered/Resolved]
